FAERS Safety Report 5639465-6 (Version None)
Quarter: 2008Q1

REPORT INFORMATION
  Report Type: 
  Country: None (occurrence: None)
  Receive Date: 20080226
  Receipt Date: 20080219
  Transmission Date: 20080703
  Serious: Yes (Other)
  Sender: FDA-Public Use
  Company Number: US-PFIZER INC-2008015727

PATIENT
  Sex: Female

DRUGS (3)
  1. XALATAN [Suspect]
     Indication: GLAUCOMA
     Dosage: FREQ:DAILY
  2. DILANTIN [Concomitant]
  3. PHENOBARBITAL TAB [Concomitant]

REACTIONS (7)
  - DEVICE MALFUNCTION [None]
  - EYE OPERATION [None]
  - OCULAR VASCULAR DISORDER [None]
  - PHARMACEUTICAL PRODUCT COMPLAINT [None]
  - VASCULAR INJURY [None]
  - VISUAL ACUITY REDUCED [None]
  - WEIGHT DECREASED [None]
